FAERS Safety Report 6616266-3 (Version None)
Quarter: 2010Q1

REPORT INFORMATION
  Report Type: 
  Country: None (occurrence: None)
  Receive Date: 20100305
  Receipt Date: 20100226
  Transmission Date: 20100710
  Serious: Yes (Other)
  Sender: FDA-Public Use
  Company Number: US-SANOFI-AVENTIS-2010SA011795

PATIENT
  Age: 49 Year
  Sex: Female

DRUGS (2)
  1. LANTUS [Suspect]
     Dosage: DOSE:25 UNIT(S)
     Route: 058
     Dates: start: 20090101
  2. NOVOLOG [Suspect]
     Dosage: 1 UNIT PER 15 GRAMS CARBOHYDRATE
     Route: 058

REACTIONS (8)
  - ALTERED STATE OF CONSCIOUSNESS [None]
  - BITE [None]
  - BLOOD GLUCOSE DECREASED [None]
  - CONFUSIONAL STATE [None]
  - CONVULSION [None]
  - SHOCK HYPOGLYCAEMIC [None]
  - SOMNOLENCE [None]
  - SPEECH DISORDER [None]
